FAERS Safety Report 14681468 (Version 3)
Quarter: 2018Q4

REPORT INFORMATION
  Report Type: Spontaneous
  Country: DE (occurrence: DE)
  Receive Date: 20180326
  Receipt Date: 20181005
  Transmission Date: 20190204
  Serious: Yes (Death, Other)
  Sender: FDA-Public Use
  Company Number: DE-INCYTE CORPORATION-2018IN002679

PATIENT

DRUGS (18)
  1. MYCOPHENOLIC ACID. [Suspect]
     Active Substance: MYCOPHENOLIC ACID
     Indication: CHRONIC GRAFT VERSUS HOST DISEASE IN LIVER
  2. MYCOPHENOLIC ACID. [Suspect]
     Active Substance: MYCOPHENOLIC ACID
     Indication: CHRONIC GRAFT VERSUS HOST DISEASE
  3. TACROLIMUS. [Suspect]
     Active Substance: TACROLIMUS
     Indication: IMMUNOSUPPRESSANT DRUG THERAPY
  4. FLUDARABINE [Concomitant]
     Active Substance: FLUDARABINE PHOSPHATE
     Indication: BONE MARROW CONDITIONING REGIMEN
     Dosage: UNK
     Route: 065
  5. MYCOPHENOLIC ACID. [Suspect]
     Active Substance: MYCOPHENOLIC ACID
     Indication: GRAFT VERSUS HOST DISEASE IN LUNG
  6. METHYLPREDNISOLONE. [Suspect]
     Active Substance: METHYLPREDNISOLONE
     Indication: CHRONIC GRAFT VERSUS HOST DISEASE
  7. JAKAVI [Suspect]
     Active Substance: RUXOLITINIB
     Indication: CHRONIC GRAFT VERSUS HOST DISEASE
  8. JAKAVI [Suspect]
     Active Substance: RUXOLITINIB
     Indication: CHRONIC GRAFT VERSUS HOST DISEASE IN SKIN
     Dosage: 2 X 5-10 MG, UNK
     Route: 065
  9. MYCOPHENOLIC ACID. [Suspect]
     Active Substance: MYCOPHENOLIC ACID
     Indication: CHRONIC GRAFT VERSUS HOST DISEASE IN SKIN
     Dosage: UNK
     Route: 065
  10. METHYLPREDNISOLONE. [Suspect]
     Active Substance: METHYLPREDNISOLONE
     Indication: CHRONIC GRAFT VERSUS HOST DISEASE IN LIVER
  11. METHYLPREDNISOLONE. [Suspect]
     Active Substance: METHYLPREDNISOLONE
     Indication: GRAFT VERSUS HOST DISEASE IN LUNG
  12. ANTITHYMOCYTE IMMUNOGLOBULIN [Concomitant]
     Active Substance: THYMOCYTE IMMUNE GLOBULIN NOS
     Indication: BONE MARROW CONDITIONING REGIMEN
     Dosage: UNK
     Route: 065
  13. JAKAVI [Suspect]
     Active Substance: RUXOLITINIB
     Indication: GRAFT VERSUS HOST DISEASE IN LUNG
  14. METHYLPREDNISOLONE. [Suspect]
     Active Substance: METHYLPREDNISOLONE
     Indication: CHRONIC GRAFT VERSUS HOST DISEASE IN SKIN
     Dosage: UNK
     Route: 065
  15. ECULIZUMAB [Suspect]
     Active Substance: ECULIZUMAB
     Indication: THROMBOTIC MICROANGIOPATHY
     Dosage: 7 INFUSIONS
     Route: 065
  16. MELPHALAN. [Concomitant]
     Active Substance: MELPHALAN
     Indication: BONE MARROW CONDITIONING REGIMEN
     Dosage: UNK (HIGH DOSE)
     Route: 065
  17. JAKAVI [Suspect]
     Active Substance: RUXOLITINIB
     Indication: CHRONIC GRAFT VERSUS HOST DISEASE IN LIVER
  18. TACROLIMUS. [Suspect]
     Active Substance: TACROLIMUS
     Indication: STEM CELL TRANSPLANT
     Dosage: UNK
     Route: 065

REACTIONS (11)
  - Chronic graft versus host disease [Fatal]
  - Anaemia [Unknown]
  - Thrombotic microangiopathy [Unknown]
  - Pupils unequal [Recovered/Resolved]
  - Chronic graft versus host disease in liver [Fatal]
  - Thrombocytopenia [Unknown]
  - Chronic graft versus host disease in skin [Fatal]
  - Headache [Recovered/Resolved]
  - Graft versus host disease in lung [Fatal]
  - Infection [Unknown]
  - Off label use [Unknown]
